FAERS Safety Report 5394501-X (Version None)
Quarter: 2007Q3

REPORT INFORMATION
  Report Type: 
  Country: None (occurrence: None)
  Receive Date: 20070723
  Receipt Date: 20070710
  Transmission Date: 20080115
  Serious: Yes (Death)
  Sender: FDA-Public Use
  Company Number: AT-PURDUE-DEU_2007_0003482

PATIENT
  Age: 21 Year
  Sex: Male

DRUGS (2)
  1. MORPHINE [Suspect]
     Indication: DRUG USE FOR UNKNOWN INDICATION
  2. ALCOHOL [Suspect]
     Indication: DRUG USE FOR UNKNOWN INDICATION

REACTIONS (2)
  - DEATH [None]
  - DRUG ABUSER [None]
